FAERS Safety Report 26175255 (Version 1)
Quarter: 2025Q4

REPORT INFORMATION
  Report Type: Spontaneous
  Country: EU (occurrence: EU)
  Receive Date: 20251218
  Receipt Date: 20251218
  Transmission Date: 20260117
  Serious: Yes (Other)
  Sender: FRESENIUS KABI
  Company Number: None

PATIENT
  Sex: Male
  Weight: 85 kg

DRUGS (3)
  1. OXALIPLATIN [Suspect]
     Active Substance: OXALIPLATIN
     Indication: Gastric cancer
     Dosage: 09:40 UNTIL DISCONTINUATION?FOA: SOLUTION FOR INFUSION
     Route: 042
  2. Dexahexal [Concomitant]
     Indication: Gastric cancer
     Dosage: 08.00-08.20 HOURS
     Route: 042
  3. DOCETAXEL [Concomitant]
     Active Substance: DOCETAXEL
     Indication: Gastric cancer
     Dosage: 08.30-09.30 HOURS
     Route: 042

REACTIONS (3)
  - C-reactive protein increased [Recovered/Resolved]
  - Urticaria [Recovered/Resolved]
  - Pruritus [Recovered/Resolved]
